FAERS Safety Report 21596901 (Version 6)
Quarter: 2023Q1

REPORT INFORMATION
  Report Type: Report from Study
  Country: US (occurrence: US)
  Receive Date: 20221115
  Receipt Date: 20230328
  Transmission Date: 20230417
  Serious: No
  Sender: FDA-Public Use
  Company Number: US-002147023-NVSC2022US253596

PATIENT
  Age: 63 Year
  Sex: Male

DRUGS (1)
  1. ENTRESTO [Suspect]
     Active Substance: SACUBITRIL\VALSARTAN
     Indication: Cardiac failure
     Dosage: 1 DOSAGE FORM, BID
     Route: 048
     Dates: start: 20220905

REACTIONS (11)
  - Weight fluctuation [Recovering/Resolving]
  - Vitamin D decreased [Unknown]
  - Fluid retention [Recovering/Resolving]
  - Abdominal distension [Recovered/Resolved]
  - Joint swelling [Recovering/Resolving]
  - Peripheral swelling [Recovering/Resolving]
  - Dyspnoea exertional [Recovering/Resolving]
  - Blood pressure normal [Recovering/Resolving]
  - Headache [Not Recovered/Not Resolved]
  - Fatigue [Unknown]
  - Product dose omission issue [Recovering/Resolving]

NARRATIVE: CASE EVENT DATE: 20220901
